FAERS Safety Report 4565649-4 (Version None)
Quarter: 2005Q1

REPORT INFORMATION
  Report Type: 
  Country: None (occurrence: None)
  Receive Date: 20050125
  Receipt Date: 20050125
  Transmission Date: 20050727
  Serious: Yes (Life-Threatening)
  Sender: FDA-Public Use
  Company Number: None

PATIENT
  Age: 58 Year
  Sex: Male
  Weight: 104 kg

DRUGS (18)
  1. RASBURICASE [Suspect]
     Indication: BLOOD URIC ACID INCREASED
     Dosage: 15MG Q DAY  INTRAVENOUS
     Route: 042
     Dates: start: 20050120, end: 20050120
  2. RASBURICASE [Suspect]
     Indication: PROPHYLAXIS
     Dosage: 15MG Q DAY  INTRAVENOUS
     Route: 042
     Dates: start: 20050120, end: 20050120
  3. RASBURICASE [Suspect]
     Indication: TUMOUR LYSIS SYNDROME
     Dosage: 15MG Q DAY  INTRAVENOUS
     Route: 042
     Dates: start: 20050120, end: 20050120
  4. DOXORUBICIN [Concomitant]
  5. CISPLATIN [Concomitant]
  6. CYTARABINE [Concomitant]
  7. DEXAMETHASONE [Concomitant]
  8. ALLOPURINOL [Concomitant]
  9. DOCUSATE [Concomitant]
  10. HEPARIN [Concomitant]
  11. FUROSEMIDE [Concomitant]
  12. ONDANSETRON [Concomitant]
  13. ZOSYN [Concomitant]
  14. PREDNISOLONE EYE DROPS [Concomitant]
  15. VANCOMYCIN [Concomitant]
  16. PREDNISONE [Concomitant]
  17. SILVER SULFADIAZINE [Concomitant]
  18. SEVELAMER [Concomitant]

REACTIONS (6)
  - BLOOD CREATININE INCREASED [None]
  - DYSPNOEA [None]
  - METHAEMOGLOBINAEMIA [None]
  - OXYGEN SATURATION DECREASED [None]
  - PO2 INCREASED [None]
  - TUMOUR LYSIS SYNDROME [None]
